FAERS Safety Report 6940092-9 (Version None)
Quarter: 2010Q3

REPORT INFORMATION
  Report Type: 
  Country: None (occurrence: None)
  Receive Date: 20100825
  Receipt Date: 20100816
  Transmission Date: 20110219
  Serious: Yes (Hospitalization)
  Sender: FDA-Public Use
  Company Number: BR-US-EMD SERONO, INC.-7012673

PATIENT
  Sex: Male

DRUGS (2)
  1. REBIF [Suspect]
     Indication: RELAPSING-REMITTING MULTIPLE SCLEROSIS
     Route: 058
     Dates: start: 20100621
  2. ACETAMINOPHEN [Concomitant]

REACTIONS (7)
  - ADVERSE EVENT [None]
  - ATAXIA [None]
  - BALANCE DISORDER [None]
  - FALL [None]
  - HYPOKINESIA [None]
  - PARAESTHESIA [None]
  - URINARY INCONTINENCE [None]
